FAERS Safety Report 8421624-0 (Version None)
Quarter: 2012Q2

REPORT INFORMATION
  Report Type: 
  Country: None (occurrence: None)
  Receive Date: 20120601
  Receipt Date: 20120521
  Transmission Date: 20120825
  Serious: Yes (Hospitalization)
  Sender: FDA-Public Use
  Company Number: DSJ-2011-10178

PATIENT
  Age: 75 Year
  Sex: Female

DRUGS (5)
  1. OLMESARTAN MEDOXOMIL [Suspect]
     Indication: PRODUCT USED FOR UNKNOWN INDICATION
     Dosage: 20 MG, PER ORAL
     Route: 048
     Dates: start: 20081212, end: 20110530
  2. ADALAT [Concomitant]
  3. FLUITRAN (TRICHLOMETHIAZIDE) [Concomitant]
  4. SENNOSIDE (SENNOSIDE A+B) [Concomitant]
  5. AMARYL [Concomitant]

REACTIONS (2)
  - PNEUMONIA [None]
  - HYPOGLYCAEMIA [None]
